FAERS Safety Report 20456038 (Version 1)
Quarter: 2022Q1

REPORT INFORMATION
  Report Type: Spontaneous
  Country: US (occurrence: None)
  Receive Date: 20220210
  Receipt Date: 20220210
  Transmission Date: 20220423
  Serious: No
  Sender: FDA-Public Use
  Company Number: None

PATIENT
  Age: 45 Year
  Sex: Female

DRUGS (1)
  1. SIMPONI [Suspect]
     Active Substance: GOLIMUMAB
     Indication: Psoriatic arthropathy
     Dosage: INJECT 50MG  SUBCUTANEOUSLY ONCE A MONTH  AS DIRECTED?
     Route: 058
     Dates: start: 202106

REACTIONS (2)
  - COVID-19 [None]
  - Therapy interrupted [None]
